FAERS Safety Report 9891507 (Version 1)
Quarter: 2014Q1

REPORT INFORMATION
  Report Type: Spontaneous
  Country: US (occurrence: None)
  Receive Date: 20140210
  Receipt Date: 20140210
  Transmission Date: 20141002
  Serious: Yes (Hospitalization)
  Sender: FDA-Public Use
  Company Number: UTC-044216

PATIENT
  Age: 86 Year
  Sex: Female
  Weight: 76.81 kg

DRUGS (2)
  1. TYVASO [Suspect]
     Indication: PULMONARY ARTERIAL HYPERTENSION
     Dosage: 18-54 MCG (4 IN 1 D), INHALATION
     Route: 055
     Dates: start: 20131031
  2. ADCIRCA (TADALAFIL) (UNKNOWN) [Concomitant]

REACTIONS (3)
  - Cough [None]
  - Headache [None]
  - Dyspnoea [None]
